FAERS Safety Report 5194664-5 (Version None)
Quarter: 2006Q4

REPORT INFORMATION
  Report Type: 
  Country: None (occurrence: None)
  Receive Date: 20061222
  Receipt Date: 20061222
  Transmission Date: 20070319
  Serious: Yes (Other)
  Sender: FDA-Public Use
  Company Number: None

PATIENT
  Age: 82 Year
  Sex: Female
  Weight: 55.3388 kg

DRUGS (2)
  1. PROPULSID [Suspect]
     Indication: HIATUS HERNIA
  2. PROPULSID [Suspect]
     Indication: IMPAIRED GASTRIC EMPTYING

REACTIONS (2)
  - ARTERIOSCLEROSIS [None]
  - CHRONIC OBSTRUCTIVE PULMONARY DISEASE [None]
